FAERS Safety Report 12416924 (Version 1)
Quarter: 2016Q2

REPORT INFORMATION
  Report Type: Spontaneous
  Country: CN (occurrence: CN)
  Receive Date: 20160530
  Receipt Date: 20160530
  Transmission Date: 20160815
  Serious: Yes (Other)
  Sender: FDA-Public Use
  Company Number: CN-JNJFOC-20141000047

PATIENT
  Age: 27 Year
  Sex: Male

DRUGS (2)
  1. CONCERTA [Suspect]
     Active Substance: METHYLPHENIDATE HYDROCHLORIDE
     Indication: ATTENTION DEFICIT/HYPERACTIVITY DISORDER
     Dosage: STRENGTH 18 MG (3-4 TABLETS)
     Route: 048
     Dates: start: 2009
  2. PAROXETINE HYDROCHLORIDE. [Concomitant]
     Active Substance: PAROXETINE HYDROCHLORIDE
     Route: 065

REACTIONS (10)
  - Somnolence [Not Recovered/Not Resolved]
  - Fatigue [Not Recovered/Not Resolved]
  - Mental impairment [Recovered/Resolved]
  - Disturbance in attention [Recovered/Resolved]
  - Night sweats [Unknown]
  - Overdose [Unknown]
  - Drug dependence [Unknown]
  - Asthenia [Recovered/Resolved]
  - Wrong technique in product usage process [Unknown]
  - Drug prescribing error [Unknown]
